FAERS Safety Report 7125146-9 (Version None)
Quarter: 2010Q4

REPORT INFORMATION
  Report Type: 
  Country: None (occurrence: None)
  Receive Date: 20101129
  Receipt Date: 20101119
  Transmission Date: 20110411
  Serious: Yes (Hospitalization, Other)
  Sender: FDA-Public Use
  Company Number: US-AMGEN-USASP2010006043

PATIENT

DRUGS (2)
  1. ENBREL [Suspect]
     Indication: PSORIATIC ARTHROPATHY
     Dates: start: 20050101
  2. ENBREL [Suspect]
     Indication: PSORIASIS

REACTIONS (5)
  - GALLBLADDER DISORDER [None]
  - HEPATIC STEATOSIS [None]
  - HEPATITIS C [None]
  - PANCREATITIS [None]
  - PSORIATIC ARTHROPATHY [None]
